FAERS Safety Report 4995452-2 (Version None)
Quarter: 2006Q2

REPORT INFORMATION
  Report Type: 
  Country: None (occurrence: None)
  Receive Date: 20060504
  Receipt Date: 20060420
  Transmission Date: 20061013
  Serious: Yes (Hospitalization)
  Sender: FDA-Public Use
  Company Number: AND_0321_2006

PATIENT
  Age: 58 Year
  Sex: Female

DRUGS (6)
  1. FORTAMET [Suspect]
     Indication: DIABETES MELLITUS NON-INSULIN-DEPENDENT
     Dosage: 1000 MG QDAY PO
     Route: 048
     Dates: start: 20060301
  2. SYNTHROID [Concomitant]
  3. AVANDIA [Concomitant]
  4. DIOVAN [Concomitant]
  5. ZOLOFT [Concomitant]
  6. AVANDAMET [Concomitant]

REACTIONS (4)
  - BLOOD MAGNESIUM DECREASED [None]
  - CHEST PAIN [None]
  - MYALGIA [None]
  - REFUSAL OF TREATMENT BY PATIENT [None]
